FAERS Safety Report 10543705 (Version 1)
Quarter: 2014Q4

REPORT INFORMATION
  Report Type: Spontaneous
  Country: US (occurrence: None)
  Receive Date: 20141010
  Receipt Date: 20141010
  Transmission Date: 20150529
  Serious: No
  Sender: FDA-Public Use
  Company Number: 163-POMAL-14071058

PATIENT
  Sex: Female
  Weight: 77.57 kg

DRUGS (3)
  1. ACYCLOVIR (ACICLOVIR) (ACICLOVIR) [Concomitant]
     Active Substance: ACYCLOVIR
  2. POMALYST [Suspect]
     Active Substance: POMALIDOMIDE
     Indication: PLASMA CELL MYELOMA
     Dosage: 21 IN 21 D
     Route: 048
     Dates: start: 201312
  3. CYMBALTA (DULOXETINE HYDROHCLORIDE) [Concomitant]

REACTIONS (3)
  - Skin lesion [None]
  - Rash [None]
  - Neuropathy peripheral [None]
